FAERS Safety Report 7348426-0 (Version None)
Quarter: 2011Q1

REPORT INFORMATION
  Report Type: 
  Country: None (occurrence: None)
  Receive Date: 20110311
  Receipt Date: 20110302
  Transmission Date: 20110831
  Serious: Yes (Hospitalization)
  Sender: FDA-Public Use
  Company Number: DE-GILEAD-2011-0036699

PATIENT
  Sex: Male

DRUGS (8)
  1. NAPROXEN [Suspect]
     Indication: ARTHROPATHY
     Dates: end: 20110128
  2. ASPIRIN [Concomitant]
  3. METOHEXAL [Concomitant]
  4. RANEXA [Suspect]
     Indication: ANGINA PECTORIS
     Route: 048
     Dates: start: 20110107, end: 20110128
  5. RANEXA [Suspect]
     Dates: start: 20101206, end: 20110106
  6. PROVAS COMP [Concomitant]
  7. SIMVASTATIN [Concomitant]
  8. TEBONIN [Concomitant]

REACTIONS (1)
  - TUBULOINTERSTITIAL NEPHRITIS [None]
